FAERS Safety Report 4700724-2 (Version None)
Quarter: 2005Q2

REPORT INFORMATION
  Report Type: 
  Country: None (occurrence: None)
  Receive Date: 20050627
  Receipt Date: 20050607
  Transmission Date: 20051028
  Serious: Yes (Other)
  Sender: FDA-Public Use
  Company Number: 2005FR-00015

PATIENT
  Sex: Female

DRUGS (2)
  1. LODINE [Suspect]
     Dosage: 600MG, BID, ORAL
     Route: 048
     Dates: start: 20040915
  2. SIBUTRAMINE [Concomitant]

REACTIONS (5)
  - ACCIDENTAL OVERDOSE [None]
  - DRUG DISPENSING ERROR [None]
  - FEELING ABNORMAL [None]
  - MALAISE [None]
  - RECTAL HAEMORRHAGE [None]
